FAERS Safety Report 4390011-7 (Version None)
Quarter: 2004Q2

REPORT INFORMATION
  Report Type: 
  Country: None (occurrence: None)
  Receive Date: 20040630
  Receipt Date: 20040616
  Transmission Date: 20050107
  Serious: Yes (Life-Threatening)
  Sender: FDA-Public Use
  Company Number: 2004219829IN

PATIENT
  Age: 45 Year
  Sex: Female

DRUGS (1)
  1. DEPO-MEDROL [Suspect]
     Indication: POLYMYALGIA
     Dosage: 2 ML, SINGLE, INTRAMUSCULAR
     Route: 030
     Dates: start: 20040615, end: 20040615

REACTIONS (2)
  - ANAPHYLACTIC SHOCK [None]
  - THROAT IRRITATION [None]
